FAERS Safety Report 21139290 (Version 1)
Quarter: 2022Q3

REPORT INFORMATION
  Report Type: Spontaneous
  Country: FR (occurrence: FR)
  Receive Date: 20220727
  Receipt Date: 20220727
  Transmission Date: 20221027
  Serious: Yes (Hospitalization)
  Sender: FDA-Public Use
  Company Number: None

PATIENT
  Age: 89 Year
  Sex: Female
  Weight: 65 kg

DRUGS (16)
  1. PAXLOVID [Suspect]
     Active Substance: NIRMATRELVIR\RITONAVIR
     Indication: COVID-19 treatment
     Dosage: [PF-07321332 300 MG]/[RITONAVIR 100 MG]; 1X/DAY
     Route: 048
     Dates: start: 20220617, end: 20220621
  2. MIRTAZAPINE [Concomitant]
     Active Substance: MIRTAZAPINE
  3. NEBIVOLOL [Concomitant]
     Active Substance: NEBIVOLOL
  4. IRON [Concomitant]
     Active Substance: IRON
  5. FLUVASTATIN SODIUM [Concomitant]
     Active Substance: FLUVASTATIN SODIUM
  6. PERINDOPRIL [Concomitant]
     Active Substance: PERINDOPRIL
  7. FENOTEROL HYDROBROMIDE [Concomitant]
     Active Substance: FENOTEROL HYDROBROMIDE
  8. OXAZEPAM [Concomitant]
     Active Substance: OXAZEPAM
  9. FUROSEMIDE [Concomitant]
     Active Substance: FUROSEMIDE
  10. LERCANIDIPINE [Concomitant]
     Active Substance: LERCANIDIPINE
  11. SPIRONOLACTONE [Concomitant]
     Active Substance: SPIRONOLACTONE
  12. FORMOTEROL FUMARATE DIHYDRATE [Concomitant]
     Active Substance: FORMOTEROL FUMARATE DIHYDRATE
  13. ALENDRONIC ACID [Concomitant]
     Active Substance: ALENDRONIC ACID
  14. BUDESONIDE [Concomitant]
     Active Substance: BUDESONIDE
  15. CHOLECALCIFEROL [Concomitant]
     Active Substance: CHOLECALCIFEROL
  16. IPRATROPIUM BROMIDE [Concomitant]
     Active Substance: IPRATROPIUM BROMIDE

REACTIONS (2)
  - Hyponatraemia [Recovered/Resolved]
  - Inappropriate schedule of product administration [Unknown]

NARRATIVE: CASE EVENT DATE: 20220617
